FAERS Safety Report 7397650-X (Version None)
Quarter: 2011Q1

REPORT INFORMATION
  Report Type: 
  Country: None (occurrence: None)
  Receive Date: 20110328
  Receipt Date: 20110311
  Transmission Date: 20110831
  Serious: No
  Sender: FDA-Public Use
  Company Number: 2011-00103

PATIENT
  Sex: Female

DRUGS (4)
  1. ZICAM COLD REMEDY NASAL GEL [Suspect]
  2. ZICAM COLD REMEDY NASAL GEL [Suspect]
  3. ZICAM COLD REMEDY NASAL GEL [Suspect]
  4. ZICAM ALLERGY RELIEF NASAL GEL [Suspect]

REACTIONS (2)
  - DYSGEUSIA [None]
  - PAROSMIA [None]
